FAERS Safety Report 4636049-3 (Version None)
Quarter: 2005Q2

REPORT INFORMATION
  Report Type: 
  Country: None (occurrence: None)
  Receive Date: 20050415
  Receipt Date: 20050404
  Transmission Date: 20051028
  Serious: Yes (Death)
  Sender: FDA-Public Use
  Company Number: DE-JNJFOC-20050201813

PATIENT
  Sex: Male

DRUGS (3)
  1. REMICADE [Suspect]
     Indication: PYODERMA GANGRENOSUM
     Route: 042
  2. METHYLPREDNISOLONE [Concomitant]
  3. MYCOPHENOLATMOFETL [Concomitant]
     Route: 065

REACTIONS (8)
  - AMPUTATION [None]
  - DRUG INEFFECTIVE [None]
  - HERPES ZOSTER [None]
  - LOBAR PNEUMONIA [None]
  - MESENTERIC OCCLUSION [None]
  - MULTI-ORGAN FAILURE [None]
  - NERVOUS SYSTEM DISORDER [None]
  - SEPSIS [None]
